FAERS Safety Report 8560764-2 (Version None)
Quarter: 2012Q3

REPORT INFORMATION
  Report Type: 
  Country: None (occurrence: None)
  Receive Date: 20120802
  Receipt Date: 20120725
  Transmission Date: 20120928
  Serious: Yes (Other)
  Sender: FDA-Public Use
  Company Number: US-UCBSA-062677

PATIENT
  Age: 50 Year
  Sex: Female

DRUGS (5)
  1. TRILEPTAL [Concomitant]
  2. VIMPAT [Suspect]
     Indication: CONVULSION
     Dosage: AM
  3. ESTROGEN [Concomitant]
  4. NEXIUM [Concomitant]
  5. THYROIDS [Concomitant]

REACTIONS (2)
  - CYSTITIS [None]
  - FUNGAL INFECTION [None]
